FAERS Safety Report 17635011 (Version 1)
Quarter: 2020Q2

REPORT INFORMATION
  Report Type: Spontaneous
  Country: CN (occurrence: CN)
  Receive Date: 20200407
  Receipt Date: 20200407
  Transmission Date: 20200713
  Serious: Yes (Hospitalization)
  Sender: FDA-Public Use
  Company Number: CN-BAXTER-2020BAX007259

PATIENT
  Age: 15 Year
  Sex: Female
  Weight: 44 kg

DRUGS (6)
  1. 5% GLUCOSE  INJECTION [Suspect]
     Active Substance: DEXTROSE
     Indication: MEDICATION DILUTION
     Dosage: VAC REGIMEN, DAYS 1-2, ENDOXAN + GLUCOSE
     Route: 041
     Dates: start: 20200308, end: 20200309
  2. 5% GLUCOSE  INJECTION [Suspect]
     Active Substance: DEXTROSE
     Dosage: VAC REGIMEN, DAYS 1-2, DOXORUBICIN + GLUCOSE
     Route: 041
     Dates: start: 20200308, end: 20200309
  3. 0.9% SODIUM CHLORIDE INJECTION [Suspect]
     Active Substance: SODIUM CHLORIDE
     Indication: MEDICATION DILUTION
     Dosage: VAC REGIMEN, DAY 1, VINCRISTINE + NS
     Route: 041
     Dates: start: 20200308, end: 20200308
  4. DOXORUBICIN HYDROCHLORIDE LIPOSOME [Suspect]
     Active Substance: DOXORUBICIN HYDROCHLORIDE
     Indication: EWING^S SARCOMA
     Dosage: VAC REGIMEN, DAYS 1-2, DOXORUBICIN + GLUCOSE
     Route: 041
     Dates: start: 20200308, end: 20200309
  5. ENDOXAN [Suspect]
     Active Substance: CYCLOPHOSPHAMIDE
     Indication: EWING^S SARCOMA
     Dosage: VAC REGIMEN, DAYS 1-2, ENDOXAN + GLUCOSE
     Route: 041
     Dates: start: 20200308, end: 20200309
  6. VINDESINE SULFATE [Suspect]
     Active Substance: VINDESINE SULFATE
     Indication: EWING^S SARCOMA
     Dosage: VAC REGIMEN, DAY 1, VINCRISTINE + NS
     Route: 041
     Dates: start: 20200308, end: 20200308

REACTIONS (2)
  - Pyrexia [Recovering/Resolving]
  - Bone marrow failure [Recovering/Resolving]

NARRATIVE: CASE EVENT DATE: 20200320
